FAERS Safety Report 4882283-7 (Version None)
Quarter: 2006Q1

REPORT INFORMATION
  Report Type: 
  Country: None (occurrence: None)
  Receive Date: 20060112
  Receipt Date: 20060103
  Transmission Date: 20060701
  Serious: Yes (Life-Threatening, Hospitalization, Disabling)
  Sender: FDA-Public Use
  Company Number: 2005169469

PATIENT
  Age: 39 Year
  Sex: Female

DRUGS (2)
  1. ZITHROMAX [Suspect]
     Indication: OTITIS MEDIA
     Dosage: 500 MG (500 MG, 1 IN 1 D), ORAL
     Route: 048
     Dates: start: 20050209, end: 20050211
  2. TRIOFAN (CARBOCISTEINE, XYLOMETAZOLINE HYDROCHLORIDE) [Concomitant]

REACTIONS (8)
  - DEAFNESS [None]
  - ENCEPHALITIS [None]
  - FACIAL PARESIS [None]
  - IIIRD NERVE PARESIS [None]
  - PATHOGEN RESISTANCE [None]
  - PNEUMOCOCCAL INFECTION [None]
  - POLYNEUROPATHY [None]
  - VENOUS THROMBOSIS [None]
